FAERS Safety Report 8807033 (Version 1)
Quarter: 2012Q4

REPORT INFORMATION
  Report Type: 
  Country: HU (occurrence: HU)
  Receive Date: 20120925
  Receipt Date: 20120925
  Transmission Date: 20130627
  Serious: Yes (Other)
  Sender: FDA-Public Use
  Company Number: PHHY2012HU048646

PATIENT
  Sex: Female

DRUGS (5)
  1. ACLASTA [Suspect]
     Indication: OSTEOPOROSIS
     Dosage: 5mg/year
     Route: 042
     Dates: start: 201205
  2. LETROX [Concomitant]
     Dosage: 75 ug per day
  3. CALCIUM CITRATE [Concomitant]
     Dosage: 200 mg,
  4. VITAMIN D3 [Concomitant]
     Dosage: 3000 NE, UNK
  5. VITAMIN D [Concomitant]
     Dosage: 3 DF, UNK

REACTIONS (6)
  - Blindness [Recovered/Resolved]
  - Iritis [Recovered/Resolved]
  - Iridocyclitis [Recovered/Resolved]
  - Ocular hyperaemia [Recovered/Resolved]
  - Eye pain [Recovered/Resolved]
  - Photophobia [Recovered/Resolved]
